FAERS Safety Report 7126157-X (Version None)
Quarter: 2010Q4

REPORT INFORMATION
  Report Type: 
  Country: None (occurrence: None)
  Receive Date: 20101129
  Receipt Date: 20101116
  Transmission Date: 20110411
  Serious: Yes (Other)
  Sender: FDA-Public Use
  Company Number: US-JNJFOC-20100708084

PATIENT
  Sex: Female

DRUGS (7)
  1. LEVAQUIN [Suspect]
     Indication: SINUSITIS
     Route: 048
  2. LEVAQUIN [Suspect]
     Route: 048
  3. LEVAQUIN [Suspect]
     Indication: BACTERIAL INFECTION
     Route: 048
  4. LEVAQUIN [Suspect]
     Route: 048
  5. PREDNISONE [Suspect]
     Indication: ILL-DEFINED DISORDER
     Route: 048
  6. PROPOXYPHENE HYDROCHLORIDE [Concomitant]
     Indication: PAIN
     Route: 065
  7. SIMVASTATIN [Concomitant]
     Indication: BLOOD CHOLESTEROL
     Route: 048

REACTIONS (6)
  - ANKLE FRACTURE [None]
  - BURSITIS [None]
  - MUSCULOSKELETAL PAIN [None]
  - SEXUAL DYSFUNCTION [None]
  - TENDON RUPTURE [None]
  - TENOSYNOVITIS [None]
